FAERS Safety Report 8549046-2 (Version None)
Quarter: 2012Q3

REPORT INFORMATION
  Report Type: 
  Country: None (occurrence: None)
  Receive Date: 20120730
  Receipt Date: 20120725
  Transmission Date: 20120928
  Serious: Yes (Other)
  Sender: FDA-Public Use
  Company Number: US-PFIZER INC-2012180573

PATIENT
  Sex: Female
  Weight: 70 kg

DRUGS (3)
  1. DILAUDID [Concomitant]
     Indication: PAIN
     Dosage: 4 MG, 3X/DAY
  2. CYMBALTA [Concomitant]
     Indication: ANXIETY
     Dosage: 30 MG, 1X/DAY
  3. CELEBREX [Suspect]
     Indication: RHEUMATOID ARTHRITIS
     Dosage: 200 MG, 1X/DAY
     Route: 048
     Dates: start: 20120607

REACTIONS (2)
  - STAPHYLOCOCCAL INFECTION [None]
  - FAECES PALE [None]
